FAERS Safety Report 19563936 (Version 3)
Quarter: 2021Q3

REPORT INFORMATION
  Report Type: Spontaneous
  Country: JP (occurrence: JP)
  Receive Date: 20210715
  Receipt Date: 20210805
  Transmission Date: 20211014
  Serious: Yes (Other)
  Sender: FDA-Public Use
  Company Number: JP-ABBVIE-21K-087-3993395-00

PATIENT
  Age: 30 Year
  Sex: Female
  Weight: 64.5 kg

DRUGS (3)
  1. VIBRAMYCIN [Concomitant]
     Active Substance: DOXYCYCLINE
     Indication: HIDRADENITIS
     Route: 048
  2. ADALIMUMAB [Suspect]
     Active Substance: ADALIMUMAB
     Indication: HIDRADENITIS
     Route: 058
  3. ADALIMUMAB [Suspect]
     Active Substance: ADALIMUMAB
     Dosage: 12 TIMES ADMINISTERED
     Route: 058

REACTIONS (2)
  - Abscess limb [Recovering/Resolving]
  - Infection [Recovering/Resolving]
